FAERS Safety Report 7429733-X (Version None)
Quarter: 2011Q2

REPORT INFORMATION
  Report Type: 
  Country: None (occurrence: None)
  Receive Date: 20110421
  Receipt Date: 20110419
  Transmission Date: 20111010
  Serious: Yes (Other)
  Sender: FDA-Public Use
  Company Number: CH-PFIZER INC-2011051251

PATIENT
  Age: 46 Year
  Sex: Male

DRUGS (6)
  1. SALAZOPYRIN EN [Suspect]
     Dosage: 500 MG, 2X/DAY
     Route: 048
  2. SALAZOPYRIN EN [Suspect]
     Dosage: 500 MG, 1X/DAY
     Route: 048
     Dates: start: 20110101
  3. OMEPRAZOLE [Concomitant]
     Dosage: 40 MG, 1X/DAY
     Route: 048
  4. XENICAL [Concomitant]
     Dosage: 120 MG, 3X/DAY
     Route: 048
  5. IMUREK [Concomitant]
     Dosage: 25 MG, 3X/DAY
     Route: 048
  6. CALCIMAGON [Concomitant]
     Dosage: 1000 MG, 1X/DAY
     Route: 048

REACTIONS (6)
  - DYSPEPSIA [None]
  - BLOOD PRESSURE INCREASED [None]
  - NAUSEA [None]
  - HYPERHIDROSIS [None]
  - ABDOMINAL DISCOMFORT [None]
  - DYSPNOEA [None]
